FAERS Safety Report 4950840-5 (Version None)
Quarter: 2006Q1

REPORT INFORMATION
  Report Type: 
  Country: None (occurrence: None)
  Receive Date: 20060321
  Receipt Date: 20060321
  Transmission Date: 20060701
  Serious: Yes (Other)
  Sender: FDA-Public Use
  Company Number: None

PATIENT
  Age: 80 Year
  Sex: Male
  Weight: 71.6 kg

DRUGS (11)
  1. GLIPIZIDE [Suspect]
  2. LISINOPRIL [Concomitant]
  3. METFORMIN HYDROCHLORIDE [Concomitant]
  4. CITALOPRAM HYDROBROMIDE [Concomitant]
  5. DOCUSATE NA [Concomitant]
  6. HYDROCODONE 7.5 /ACETAMINOPHEN [Concomitant]
  7. ASPIRIN [Concomitant]
  8. ATENOLOL 50/CHLORTHALIDONE [Concomitant]
  9. CLOPIDOGREL BISULFATE [Concomitant]
  10. SIMVASTATIN [Concomitant]
  11. RANITIDINE HCL [Concomitant]

REACTIONS (1)
  - RASH [None]
